FAERS Safety Report 9232947 (Version 1)
Quarter: 2013Q2

REPORT INFORMATION
  Report Type: Spontaneous
  Country: US (occurrence: None)
  Receive Date: 20130415
  Receipt Date: 20130415
  Transmission Date: 20140414
  Serious: Yes (Hospitalization)
  Sender: FDA-Public Use
  Company Number: None

PATIENT
  Age: 49 Year
  Sex: Male
  Weight: 107.96 kg

DRUGS (1)
  1. JANUVIA 100MG MERCK [Suspect]
     Indication: TYPE 2 DIABETES MELLITUS
     Dosage: 100MG ONCE DAILY PO
     Route: 048
     Dates: start: 20130301, end: 20130307

REACTIONS (1)
  - Pancreatitis acute [None]
